FAERS Safety Report 21886983 (Version 1)
Quarter: 2023Q1

REPORT INFORMATION
  Report Type: Spontaneous
  Country: CA (occurrence: CA)
  Receive Date: 20230119
  Receipt Date: 20230119
  Transmission Date: 20230417
  Serious: Yes (Life-Threatening, Other)
  Sender: FDA-Public Use
  Company Number: CA-009507513-2301CAN006707

PATIENT
  Sex: Female

DRUGS (1)
  1. EMEND (FOSAPREPITANT DIMEGLUMINE) [Suspect]
     Active Substance: FOSAPREPITANT DIMEGLUMINE
     Indication: Vomiting
     Dosage: UNK
     Route: 042

REACTIONS (6)
  - Arrhythmia [Recovered/Resolved]
  - Hypertension [Recovered/Resolved]
  - Intensive care [Recovered/Resolved]
  - Mental status changes [Recovered/Resolved]
  - Respiratory distress [Recovered/Resolved]
  - Resuscitation [Recovered/Resolved]
